FAERS Safety Report 19946930 (Version 1)
Quarter: 2021Q4

REPORT INFORMATION
  Report Type: Spontaneous
  Country: FR (occurrence: FR)
  Receive Date: 20211012
  Receipt Date: 20211012
  Transmission Date: 20220303
  Serious: Yes (Hospitalization)
  Sender: FDA-Public Use
  Company Number: FR-ABBVIE-21K-056-4116067-00

PATIENT
  Age: 54 Year
  Sex: Male

DRUGS (4)
  1. VALPROATE SODIUM [Suspect]
     Active Substance: VALPROATE SODIUM
     Indication: Cerebral toxoplasmosis
     Route: 048
     Dates: start: 199607
  2. LAMIVUDINE [Suspect]
     Active Substance: LAMIVUDINE
     Indication: Product used for unknown indication
     Route: 048
     Dates: start: 199809
  3. VIDEX [Suspect]
     Active Substance: DIDANOSINE
     Indication: Product used for unknown indication
     Route: 048
     Dates: start: 199809
  4. VIRACEPT [Suspect]
     Active Substance: NELFINAVIR MESYLATE
     Indication: Product used for unknown indication
     Route: 048
     Dates: start: 199809

REACTIONS (1)
  - Fanconi syndrome [Not Recovered/Not Resolved]
